FAERS Safety Report 4656688-3 (Version None)
Quarter: 2005Q2

REPORT INFORMATION
  Report Type: 
  Country: None (occurrence: None)
  Receive Date: 20050506
  Receipt Date: 20050422
  Transmission Date: 20051028
  Serious: Yes (Other)
  Sender: FDA-Public Use
  Company Number: S05-UKI-01571-01

PATIENT
  Age: 27 Year
  Sex: Male

DRUGS (2)
  1. CIPRALEX (ESCITALOPRAM) [Suspect]
     Indication: ANXIETY
     Dosage: 10 MG QD PO
     Route: 048
     Dates: start: 20050321, end: 20050418
  2. CIPRALEX (ESCITALOPRAM) [Suspect]
     Indication: PANIC ATTACK
     Dosage: 10 MG QD PO
     Route: 048
     Dates: start: 20050321, end: 20050418

REACTIONS (3)
  - FEELING ABNORMAL [None]
  - PSYCHOMOTOR AGITATION [None]
  - SLEEP DISORDER [None]
